FAERS Safety Report 16879724 (Version 1)
Quarter: 2019Q4

REPORT INFORMATION
  Report Type: Spontaneous
  Country: SE (occurrence: SE)
  Receive Date: 20191003
  Receipt Date: 20191003
  Transmission Date: 20200122
  Serious: Yes (Disabling)
  Sender: FDA-Public Use
  Company Number: SE-PFIZER INC-2019423014

PATIENT
  Age: 63 Year
  Sex: Female

DRUGS (2)
  1. PETNIDAN [Concomitant]
     Active Substance: ETHOSUXIMIDE
     Dosage: 1000 MG, 1X/DAY (TREATMENT TIME }30 YEARS)
  2. PHENYTOIN SODIUM. [Suspect]
     Active Substance: PHENYTOIN SODIUM
     Indication: EPILEPSY
     Dosage: UNK, 1X/DAY (DOSAGE 1+2, TREATMENT TIME }30 YEARS)
     Route: 048
     Dates: end: 201805

REACTIONS (1)
  - Cerebellar ataxia [Not Recovered/Not Resolved]

NARRATIVE: CASE EVENT DATE: 2017
